FAERS Safety Report 11835539 (Version 1)
Quarter: 2015Q4

REPORT INFORMATION
  Report Type: Spontaneous
  Country: US (occurrence: None)
  Receive Date: 20151214
  Receipt Date: 20151214
  Transmission Date: 20160305
  Serious: No
  Sender: FDA-Public Use
  Company Number: None

PATIENT
  Age: 20 Year
  Sex: Female
  Weight: 97.52 kg

DRUGS (2)
  1. PROAIR HFA [Suspect]
     Active Substance: ALBUTEROL SULFATE
     Indication: ASTHMA
     Route: 055
     Dates: start: 20151129, end: 20151211
  2. ALBUTEROL SULFATE INHALER [Concomitant]

REACTIONS (6)
  - Muscle spasms [None]
  - Irritability [None]
  - Headache [None]
  - Tremor [None]
  - Blood pressure increased [None]
  - Disturbance in attention [None]

NARRATIVE: CASE EVENT DATE: 20151211
